FAERS Safety Report 13302635 (Version 6)
Quarter: 2017Q2

REPORT INFORMATION
  Report Type: Spontaneous
  Country: US (occurrence: US)
  Receive Date: 20170307
  Receipt Date: 20170519
  Transmission Date: 20170830
  Serious: Yes (Hospitalization, Other)
  Sender: FDA-Public Use
  Company Number: PHEH2017US006797

PATIENT
  Sex: Male

DRUGS (3)
  1. KEFLEX [Suspect]
     Active Substance: CEPHALEXIN
     Indication: PRODUCT USED FOR UNKNOWN INDICATION
     Route: 065
  2. AFINITOR [Suspect]
     Active Substance: EVEROLIMUS
     Indication: RENAL CELL CARCINOMA
     Route: 065
  3. LENVIMA [Suspect]
     Active Substance: LENVATINIB
     Indication: RENAL CELL CARCINOMA
     Dosage: 14 MG, QD
     Route: 048
     Dates: start: 20170223

REACTIONS (14)
  - Lip swelling [Unknown]
  - Swollen tongue [Unknown]
  - Myocardial infarction [Unknown]
  - Rash [Unknown]
  - Heart rate increased [Unknown]
  - Muscle spasms [Unknown]
  - Asthenia [Unknown]
  - Diarrhoea [Unknown]
  - Drug hypersensitivity [Unknown]
  - Swelling [Unknown]
  - Fatigue [Unknown]
  - Headache [Unknown]
  - Decreased appetite [Unknown]
  - Abdominal pain upper [Unknown]
